FAERS Safety Report 12705623 (Version 1)
Quarter: 2016Q3

REPORT INFORMATION
  Report Type: Spontaneous
  Country: US (occurrence: None)
  Receive Date: 20160831
  Receipt Date: 20160831
  Transmission Date: 20161109
  Serious: Yes (Other)
  Sender: FDA-Public Use
  Company Number: None

PATIENT
  Age: 47 Year
  Sex: Female
  Weight: 102.3 kg

DRUGS (1)
  1. CIMZIA [Suspect]
     Active Substance: CERTOLIZUMAB PEGOL
     Indication: RHEUMATOID ARTHRITIS
     Dosage: CIMZIA 400MG EVERY 28 DAYS SUB-Q
     Route: 058
     Dates: start: 201608

REACTIONS (3)
  - Post procedural infection [None]
  - Diarrhoea [None]
  - Staphylococcal infection [None]

NARRATIVE: CASE EVENT DATE: 201608
